FAERS Safety Report 13072476 (Version 3)
Quarter: 2017Q1

REPORT INFORMATION
  Report Type: Report from Study
  Country: US (occurrence: US)
  Receive Date: 20161229
  Receipt Date: 20170329
  Transmission Date: 20170428
  Serious: Yes (Other)
  Sender: FDA-Public Use
  Company Number: US-BAYER-2016-241423

PATIENT
  Age: 73 Year
  Sex: Male

DRUGS (4)
  1. VEMURAFENIB [Suspect]
     Active Substance: VEMURAFENIB
     Dosage: 3 DF, BID
     Dates: start: 2016
  2. NEXAVAR [Suspect]
     Active Substance: SORAFENIB
     Indication: SALIVARY GLAND CANCER
     Dosage: 400 MG, BID
     Route: 048
     Dates: start: 201610, end: 201610
  3. NEXAVAR [Suspect]
     Active Substance: SORAFENIB
     Indication: SALIVARY GLAND CANCER
     Dosage: 200 MG, BID
     Route: 048
     Dates: start: 201610, end: 201611
  4. NEXAVAR [Suspect]
     Active Substance: SORAFENIB
     Indication: SALIVARY GLAND CANCER
     Dosage: 200 MG, OM
     Route: 048
     Dates: start: 2016

REACTIONS (25)
  - Alopecia [Not Recovered/Not Resolved]
  - Vision blurred [Not Recovered/Not Resolved]
  - Skin exfoliation [None]
  - Burning sensation [Not Recovered/Not Resolved]
  - Skin irritation [Not Recovered/Not Resolved]
  - Gingival pain [Not Recovered/Not Resolved]
  - Rash generalised [Recovered/Resolved]
  - Neoplasm skin [Not Recovered/Not Resolved]
  - Skin irritation [Not Recovered/Not Resolved]
  - Skin exfoliation [None]
  - Scab [None]
  - Off label use [None]
  - Pain in extremity [Not Recovered/Not Resolved]
  - Pruritus [Not Recovered/Not Resolved]
  - Dry mouth [Not Recovered/Not Resolved]
  - Palmoplantar keratoderma [Not Recovered/Not Resolved]
  - Pain in extremity [Recovering/Resolving]
  - Pain in extremity [None]
  - Gingival bleeding [Not Recovered/Not Resolved]
  - Wheelchair user [None]
  - Alopecia [Not Recovered/Not Resolved]
  - Renal function test abnormal [None]
  - Oedema peripheral [Not Recovered/Not Resolved]
  - Skin lesion [None]
  - Fatigue [Not Recovered/Not Resolved]

NARRATIVE: CASE EVENT DATE: 2016
